FAERS Safety Report 22259297 (Version 2)
Quarter: 2023Q2

REPORT INFORMATION
  Report Type: Spontaneous
  Country: FR (occurrence: FR)
  Receive Date: 20230427
  Receipt Date: 20230603
  Transmission Date: 20230722
  Serious: Yes (Death, Hospitalization, Other)
  Sender: FDA-Public Use
  Company Number: FR-AMGEN-FRASP2023069604

PATIENT
  Age: 62 Year
  Sex: Female
  Weight: 41 kg

DRUGS (7)
  1. LUMAKRAS [Suspect]
     Active Substance: SOTORASIB
     Indication: Lung adenocarcinoma stage IV
     Dosage: 960 MILLIGRAM, QD
     Route: 048
     Dates: start: 20210816, end: 20220310
  2. BISOPROLOL [Concomitant]
     Active Substance: BISOPROLOL
     Dosage: 2.5 MILLIGRAM, QD
  3. KARDEGIC [Concomitant]
     Active Substance: ASPIRIN DL-LYSINE
     Dosage: 75 MILLIGRAM, QD
  4. ESOMEPRAZOLE [Concomitant]
     Active Substance: ESOMEPRAZOLE
     Dosage: 40 MILLIGRAM, QD
  5. PERINDOPRIL [Concomitant]
     Active Substance: PERINDOPRIL
     Dosage: 2.5 MILLIGRAM, QD
  6. ATORVASTATIN CALCIUM TRIHYDRATE\EZETIMIBE [Concomitant]
     Active Substance: ATORVASTATIN CALCIUM TRIHYDRATE\EZETIMIBE
     Dosage: 10 MILLIGRAM, QD
  7. LEVOTHYROXINE [Concomitant]
     Active Substance: LEVOTHYROXINE
     Dosage: 100 MICROGRAM, QD

REACTIONS (12)
  - Femoral neck fracture [Unknown]
  - Cerebral microhaemorrhage [Unknown]
  - Hepatic cytolysis [Unknown]
  - Acute hepatic failure [Unknown]
  - Cholestasis [Unknown]
  - Renal failure [Unknown]
  - Carotid artery aneurysm [Unknown]
  - Septic shock [Unknown]
  - Hypercapnic coma [Unknown]
  - Respiratory acidosis [Unknown]
  - Lung adenocarcinoma stage IV [Fatal]
  - Anaemia [Unknown]

NARRATIVE: CASE EVENT DATE: 20220228
